FAERS Safety Report 5339538-1 (Version None)
Quarter: 2007Q2

REPORT INFORMATION
  Report Type: 
  Country: None (occurrence: None)
  Receive Date: 20070404
  Receipt Date: 20061215
  Transmission Date: 20071010
  Serious: Yes (Other)
  Sender: FDA-Public Use
  Company Number: US200612002949

PATIENT
  Age: 60 Year
  Sex: Male

DRUGS (1)
  1. ALIMTA [Suspect]
     Indication: NON-SMALL CELL LUNG CANCER
     Dosage: 500 MG/M2, INTRAVENOUS
     Route: 042
     Dates: start: 20061101

REACTIONS (1)
  - DEEP VEIN THROMBOSIS [None]
